FAERS Safety Report 5015475-7 (Version None)
Quarter: 2006Q2

REPORT INFORMATION
  Report Type: 
  Country: None (occurrence: None)
  Receive Date: 20060530
  Receipt Date: 20060530
  Transmission Date: 20061013
  Serious: Yes (Other)
  Sender: FDA-Public Use
  Company Number: None

PATIENT
  Age: 74 Year
  Sex: Male
  Weight: 97.1 kg

DRUGS (5)
  1. NIACIN [Suspect]
  2. SIMVASTATIN [Concomitant]
  3. TERAZOSIN HCL [Concomitant]
  4. NIACIN [Concomitant]
  5. INDOMETHACIN [Concomitant]

REACTIONS (1)
  - FLUSHING [None]
